FAERS Safety Report 13179664 (Version 1)
Quarter: 2017Q1

REPORT INFORMATION
  Report Type: Spontaneous
  Country: US (occurrence: US)
  Receive Date: 20170202
  Receipt Date: 20170202
  Transmission Date: 20170428
  Serious: No
  Sender: FDA-Public Use
  Company Number: None

PATIENT
  Age: 19 Year
  Sex: Male
  Weight: 65.25 kg

DRUGS (1)
  1. WELLBUTRIN XL [Suspect]
     Active Substance: BUPROPION HYDROCHLORIDE
     Dosage: OTHER FREQUENCY:QAM;?
     Route: 048
     Dates: start: 20170129, end: 20170130

REACTIONS (1)
  - Fatigue [None]

NARRATIVE: CASE EVENT DATE: 20170130
